FAERS Safety Report 6895314-X (Version None)
Quarter: 2010Q3

REPORT INFORMATION
  Report Type: 
  Country: None (occurrence: None)
  Receive Date: 20100708
  Receipt Date: 20090918
  Transmission Date: 20110219
  Serious: Yes (Other)
  Sender: FDA-Public Use
  Company Number: 2009271675

PATIENT
  Sex: Male

DRUGS (1)
  1. CHANTIX [Suspect]
     Dates: start: 20070128

REACTIONS (14)
  - AGGRESSION [None]
  - AMNESIA [None]
  - CHEST PAIN [None]
  - CONVULSION [None]
  - DECREASED APPETITE [None]
  - HALLUCINATION [None]
  - HOMICIDAL IDEATION [None]
  - INSOMNIA [None]
  - LOSS OF CONSCIOUSNESS [None]
  - NAUSEA [None]
  - NIGHTMARE [None]
  - PARANOIA [None]
  - SUICIDAL IDEATION [None]
  - SUICIDE ATTEMPT [None]
